FAERS Safety Report 22223148 (Version 1)
Quarter: 2023Q2

REPORT INFORMATION
  Report Type: Spontaneous
  Country: US (occurrence: None)
  Receive Date: 20230417
  Receipt Date: 20230417
  Transmission Date: 20230721
  Serious: No
  Sender: FDA-Public Use
  Company Number: None

PATIENT
  Age: 61 Year
  Sex: Female

DRUGS (1)
  1. LENVIMA [Suspect]
     Active Substance: LENVATINIB
     Indication: Endometrial cancer
     Dosage: FREQUENCY : DAILY;?
     Route: 048
     Dates: start: 20230126, end: 20230402

REACTIONS (13)
  - Nausea [None]
  - Weight decreased [None]
  - Oral pain [None]
  - Gingival pain [None]
  - Arthralgia [None]
  - Musculoskeletal stiffness [None]
  - Joint swelling [None]
  - Peripheral swelling [None]
  - Neuropathy peripheral [None]
  - Haemorrhoidal haemorrhage [None]
  - Rash [None]
  - Insomnia [None]
  - Vomiting [None]

NARRATIVE: CASE EVENT DATE: 20230322
